FAERS Safety Report 14129244 (Version 1)
Quarter: 2017Q4

REPORT INFORMATION
  Report Type: Report from Study
  Country: FR (occurrence: FR)
  Receive Date: 20171026
  Receipt Date: 20171026
  Transmission Date: 20180321
  Serious: Yes (Death, Hospitalization, Other)
  Sender: FDA-Public Use
  Company Number: FR-MYLANLABS-2017M1066481

PATIENT
  Age: 51 Year
  Sex: Female

DRUGS (1)
  1. BACLOFEN. [Suspect]
     Active Substance: BACLOFEN
     Indication: PRODUCT USED FOR UNKNOWN INDICATION
     Route: 048

REACTIONS (6)
  - Rhabdomyolysis [Fatal]
  - Hypotension [Fatal]
  - Seizure [Fatal]
  - Pneumonia aspiration [Fatal]
  - Coma [Fatal]
  - Toxicity to various agents [Fatal]
